FAERS Safety Report 18142339 (Version 4)
Quarter: 2020Q4

REPORT INFORMATION
  Report Type: Report from Study
  Country: US (occurrence: US)
  Receive Date: 20200812
  Receipt Date: 20201209
  Transmission Date: 20210113
  Serious: Yes (Other)
  Sender: FDA-Public Use
  Company Number: US-BIOVITRUM-2020US3502

PATIENT
  Sex: Female

DRUGS (1)
  1. KINERET [Suspect]
     Active Substance: ANAKINRA
     Indication: RHEUMATOID ARTHRITIS
     Route: 058
     Dates: start: 20200612

REACTIONS (7)
  - Product dose omission issue [Unknown]
  - Memory impairment [Unknown]
  - Contusion [Unknown]
  - COVID-19 [Unknown]
  - Injection site haemorrhage [Recovered/Resolved]
  - Poor quality sleep [Unknown]
  - Dizziness [Recovered/Resolved]
